FAERS Safety Report 6138507-1 (Version None)
Quarter: 2009Q1

REPORT INFORMATION
  Report Type: 
  Country: None (occurrence: None)
  Receive Date: 20090331
  Receipt Date: 20090326
  Transmission Date: 20090719
  Serious: Yes (Hospitalization)
  Sender: FDA-Public Use
  Company Number: US-ELI_LILLY_AND_COMPANY-US200903002443

PATIENT
  Age: 62 Year
  Sex: Male
  Weight: 125.62 kg

DRUGS (5)
  1. BYETTA [Suspect]
     Dosage: 10 UG, EACH MORNING
     Dates: start: 20080519, end: 20090106
  2. BYETTA [Suspect]
     Dosage: 5 UG, EACH EVENING
     Dates: start: 20080519, end: 20090106
  3. LIPITOR [Concomitant]
     Dosage: UNK, UNK
     Dates: start: 20060101
  4. BUMEX [Concomitant]
  5. ANGIOTENSIN II ANTAGONISTS AND DIURETICS [Concomitant]

REACTIONS (2)
  - PANCREATITIS ACUTE [None]
  - WEIGHT INCREASED [None]
